FAERS Safety Report 13777315 (Version 1)
Quarter: 2017Q3

REPORT INFORMATION
  Report Type: Spontaneous
  Country: US (occurrence: US)
  Receive Date: 20170720
  Receipt Date: 20170720
  Transmission Date: 20171127
  Serious: Yes (Other)
  Sender: FDA-Public Use
  Company Number: US-B.I. PHARMACEUTICALS,INC./RIDGEFIELD-2017-BI-039936

PATIENT
  Age: 18 Year
  Sex: Male

DRUGS (1)
  1. CATAPRES [Suspect]
     Active Substance: CLONIDINE HYDROCHLORIDE
     Indication: HYPERTENSION
     Route: 065

REACTIONS (7)
  - Blood corticotrophin increased [Unknown]
  - Cortisol increased [Unknown]
  - Blood follicle stimulating hormone decreased [Unknown]
  - Blood luteinising hormone decreased [Unknown]
  - Skin striae [Unknown]
  - Acne [Unknown]
  - Blood testosterone decreased [Unknown]
